FAERS Safety Report 5894035-X (Version None)
Quarter: 2008Q3

REPORT INFORMATION
  Report Type: 
  Country: None (occurrence: None)
  Receive Date: 20080923
  Receipt Date: 20080917
  Transmission Date: 20090109
  Serious: Yes (Hospitalization)
  Sender: FDA-Public Use
  Company Number: US-GENENTECH-258428

PATIENT
  Sex: Female
  Weight: 67.9 kg

DRUGS (4)
  1. AVASTIN [Suspect]
     Indication: OVARIAN CANCER
     Dosage: 680 MG, Q2W
     Route: 042
     Dates: start: 20080221
  2. ERLOTINIB [Suspect]
     Indication: OVARIAN CANCER
     Dosage: 150 MG, QD
     Route: 048
     Dates: start: 20080215
  3. COUMADIN [Concomitant]
     Indication: DEEP VEIN THROMBOSIS
     Dosage: 5 MG, 5/WEEK
     Dates: start: 20071101
  4. COUMADIN [Concomitant]
     Dosage: 2.5 MG, 2/WEEK
     Dates: start: 20071101

REACTIONS (1)
  - ANAEMIA [None]
